FAERS Safety Report 9889423 (Version 1)
Quarter: 2014Q1

REPORT INFORMATION
  Report Type: Report from Study
  Country: AU (occurrence: AU)
  Receive Date: 20140211
  Receipt Date: 20140211
  Transmission Date: 20141002
  Serious: Yes (Hospitalization, Other)
  Sender: FDA-Public Use
  Company Number: PHHY2014AU015763

PATIENT
  Age: 76 Year
  Sex: Female

DRUGS (28)
  1. 5-FLUOROURACIL [Suspect]
     Indication: RECTAL CANCER
     Dosage: 4900 MG/M2, LAST DATE PRIOR TO VOMITING: 30/JAN/2013 (4900 MG,2/24)
     Route: 042
     Dates: start: 20121219, end: 20130214
  2. 5-FLUOROURACIL [Suspect]
     Indication: COLON CANCER
     Dosage: 800 MG,2/52
     Route: 042
     Dates: start: 20121219, end: 20130209
  3. 5-FLUOROURACIL [Suspect]
     Dates: start: 20130130
  4. OXALIPLATIN [Suspect]
     Indication: RECTAL CANCER
     Dosage: LAST DATE PRIOR TO VOMITING: 30/JAN/2013 (170 MG,2/52)
     Route: 042
     Dates: start: 20121219, end: 20130214
  5. OXALIPLATIN [Suspect]
     Indication: COLON CANCER
  6. AVASTIN [Suspect]
     Indication: RECTAL CANCER
     Dosage: LAST DOSE PRIOR TO VOMITING: 30/JAN/2013 (485 MG,2/52)
     Route: 042
     Dates: start: 20121219, end: 20130209
  7. AVASTIN [Suspect]
     Indication: COLON CANCER
     Route: 042
     Dates: end: 20130214
  8. ZOFRAN [Concomitant]
     Dosage: 8 MG, PRN
     Route: 042
     Dates: start: 20130208, end: 20130208
  9. ZOFRAN [Concomitant]
     Dosage: 8 MG, UNK
     Route: 048
     Dates: start: 20121210
  10. PANADOL OSTEO [Concomitant]
     Dosage: 1330 MG, PRN
     Dates: start: 20130102
  11. LASIX [Concomitant]
     Dosage: 40 MG, PRN
     Dates: start: 20130131
  12. DEXAMETHASONE [Concomitant]
     Dosage: 8 MG, UNK
     Route: 042
     Dates: start: 20121219
  13. DEXAMETHASONE [Concomitant]
     Dosage: 4 MG, UNK
     Route: 048
     Dates: start: 20121220
  14. EMEND [Concomitant]
     Dosage: 125 MG, UNK
     Dates: start: 20130130
  15. EMEND [Concomitant]
     Dosage: 80 MG, UNK
     Dates: start: 20130130
  16. AVAPRO [Concomitant]
     Dosage: 300 MG, UNK
     Dates: start: 2000
  17. SIMVASTATIN [Concomitant]
     Dosage: 40 MG, UNK
     Dates: start: 201112
  18. RISENDROS [Concomitant]
     Dosage: 150 MG, UNK
     Dates: start: 201206
  19. PREMARIN [Concomitant]
     Dosage: .3 MG, Q48H (EVERY SECOND DAY)
     Dates: start: 1994
  20. PROVERA [Concomitant]
     Dosage: 5 MG, Q48H (EVERY SECOND DAY)
     Dates: start: 1994
  21. DISPIRIN [Concomitant]
     Dosage: 100 MG, UNK
     Dates: start: 201205
  22. GLUCOSAMINE/CHONDROITIN            /01625901/ [Concomitant]
     Dosage: 375 MG, UNK
     Dates: start: 2004
  23. GLUCOSAMINE/CHONDROITIN            /01625901/ [Concomitant]
     Dosage: 300 MG, UNK
     Dates: start: 2004
  24. ZANTAC [Concomitant]
  25. MAXOLON [Concomitant]
     Dosage: 10 MG, PRN
     Dates: start: 20121230
  26. AMOXYCILLIN [Concomitant]
     Dosage: 1500 MG, UNK
     Dates: start: 20130211
  27. OXYCONTIN [Concomitant]
     Dosage: 10 MG, UNK
     Dates: start: 20130208
  28. COLOXYL [Concomitant]
     Dosage: 200 MG, UNK
     Dates: start: 20130213

REACTIONS (4)
  - Pulmonary embolism [Unknown]
  - Deep vein thrombosis [Unknown]
  - Vomiting [Recovered/Resolved]
  - Fatigue [Unknown]
